FAERS Safety Report 13688976 (Version 2)
Quarter: 2017Q3

REPORT INFORMATION
  Report Type: Spontaneous
  Country: FR (occurrence: FR)
  Receive Date: 20170626
  Receipt Date: 20170705
  Transmission Date: 20171127
  Serious: Yes (Hospitalization)
  Sender: FDA-Public Use
  Company Number: FR-AUROBINDO-AUR-APL-2017-35840

PATIENT
  Age: 44 Year
  Sex: Male

DRUGS (10)
  1. CEFAZOLINE MYLAN [Suspect]
     Active Substance: CEFAZOLIN SODIUM
     Indication: INTERVERTEBRAL DISCITIS
     Dosage: 8 G, DAILY
     Route: 042
     Dates: start: 20170503, end: 20170515
  2. KARDEGIC [Suspect]
     Active Substance: ASPIRIN LYSINE
     Indication: CARDIOVASCULAR EVENT PROPHYLAXIS
     Dosage: 1 DF, ONCE A DAY
     Route: 048
     Dates: start: 20170507, end: 20170514
  3. LEVOFLOXACIN ARROW [Suspect]
     Active Substance: LEVOFLOXACIN
     Indication: INTERVERTEBRAL DISCITIS
     Dosage: 1 G, DAILY
     Route: 048
     Dates: start: 20170503
  4. PAROXETINE. [Suspect]
     Active Substance: PAROXETINE
     Indication: DEPRESSION
     Dosage: 20 MG, ONCE A DAY
     Route: 048
     Dates: start: 20170508
  5. NIQUITIN [Suspect]
     Active Substance: NICOTINE
     Indication: EX-TOBACCO USER
     Dosage: 1 DF, ONCE A DAY
     Route: 062
     Dates: start: 20170508
  6. OXYCODONE [Suspect]
     Active Substance: OXYCODONE
     Indication: INTERVERTEBRAL DISCITIS
     Dosage: UNK
     Route: 048
     Dates: start: 20170507
  7. OXAZEPAM. [Suspect]
     Active Substance: OXAZEPAM
     Indication: ANXIETY
     Dosage: 50 MG, 25 MG TWICE DAILY
     Route: 048
     Dates: start: 201705
  8. INEXIUM                            /01479302/ [Suspect]
     Active Substance: ESOMEPRAZOLE MAGNESIUM
     Indication: PRODUCT USED FOR UNKNOWN INDICATION
     Dosage: 1 DF, ONCE A DAY
     Route: 048
     Dates: start: 20170505
  9. SALAZOPYRIN [Suspect]
     Active Substance: SULFASALAZINE
     Indication: PSORIATIC ARTHROPATHY
     Dosage: 2 DF, 1 DOSAGE FORM TWICE DAILY
     Route: 048
     Dates: start: 20170507, end: 20170514
  10. TIORFAN [Suspect]
     Active Substance: RACECADOTRIL
     Indication: DIARRHOEA
     Dosage: 3 DF, (1 DOSAGE FORM THREE TIMES DAILY)
     Route: 048
     Dates: start: 20170506, end: 20170516

REACTIONS (1)
  - Renal failure [Not Recovered/Not Resolved]

NARRATIVE: CASE EVENT DATE: 20170510
